FAERS Safety Report 25166771 (Version 1)
Quarter: 2025Q2

REPORT INFORMATION
  Report Type: Spontaneous
  Country: US (occurrence: None)
  Receive Date: 20250404
  Receipt Date: 20250404
  Transmission Date: 20250717
  Serious: Yes (Disabling)
  Sender: FDA-CTU
  Company Number: None

PATIENT
  Age: 75 Year
  Sex: Female
  Weight: 56.25 kg

DRUGS (8)
  1. CIPRO [Suspect]
     Active Substance: CIPROFLOXACIN HYDROCHLORIDE
     Indication: Urinary tract infection
     Dosage: OTHER QUANTITY : 4 TABLET(S);?FREQUENCY : TWICE A DAY;?
     Route: 048
     Dates: start: 20190619, end: 20190620
  2. cane [Concomitant]
  3. CHONDROITIN SULFATE A\GLUCOSAMINE [Concomitant]
     Active Substance: CHONDROITIN SULFATE A\GLUCOSAMINE
  4. collagen II [Concomitant]
  5. HERBALS\TURMERIC [Concomitant]
     Active Substance: HERBALS\TURMERIC
  6. DIMETHYL SULFONE [Concomitant]
     Active Substance: DIMETHYL SULFONE
  7. boswelia [Concomitant]
  8. B1 [Concomitant]

REACTIONS (12)
  - Collagen disorder [None]
  - Osteoarthritis [None]
  - Neuropathy peripheral [None]
  - Brain fog [None]
  - Rash [None]
  - Pain [None]
  - Sleep disorder [None]
  - Urinary tract infection [None]
  - Incorrect dose administered [None]
  - Joint swelling [None]
  - Joint swelling [None]
  - Urosepsis [None]

NARRATIVE: CASE EVENT DATE: 20190620
